FAERS Safety Report 5082021-1 (Version None)
Quarter: 2006Q3

REPORT INFORMATION
  Report Type: 
  Country: None (occurrence: None)
  Receive Date: 20060811
  Receipt Date: 20060802
  Transmission Date: 20061208
  Serious: Yes (Hospitalization, Disabling, Other)
  Sender: FDA-Public Use
  Company Number: 2006083565

PATIENT
  Age: 76 Year
  Sex: Male

DRUGS (4)
  1. ZYVOX [Suspect]
     Indication: STAPHYLOCOCCAL SEPSIS
     Dosage: 1200 MG (600 MG,2 IN 1 D), INTRAVENOUS
     Route: 042
     Dates: start: 20060623, end: 20060626
  2. FOY (GABEXATE MESILATE) (GABEXATE MESILATE) [Concomitant]
  3. TARGOCID (TEICOPLANIN) (TEICOPLANIN) [Concomitant]
  4. VANCOMYCIN (VANCOMYCIN HYDROCHLORIDE) (VANCOMYCIN) [Concomitant]

REACTIONS (1)
  - RENAL IMPAIRMENT [None]
